FAERS Safety Report 9958057 (Version 1)
Quarter: 2014Q1

REPORT INFORMATION
  Report Type: Report from Study
  Country: US (occurrence: US)
  Receive Date: 20140304
  Receipt Date: 20140304
  Transmission Date: 20141002
  Serious: No
  Sender: FDA-Public Use
  Company Number: US-ABBVIE-13P-163-1094310-00

PATIENT
  Age: 53 Year
  Sex: Female

DRUGS (22)
  1. HUMIRA [Suspect]
     Indication: RHEUMATOID ARTHRITIS
     Dates: start: 20130204
  2. GABAPENTIN [Concomitant]
     Indication: NEURALGIA
     Dosage: AT BEDTIME
  3. HYDROCHLOROTHIAZIDE [Concomitant]
     Indication: HYPERTENSION
     Dosage: EVERY AM
  4. ALBUTEROL [Concomitant]
     Indication: DYSPNOEA
  5. PROVENTIL [Concomitant]
     Indication: DYSPNOEA
     Dosage: EVERY 6 HOURS
  6. PROVENTIL [Concomitant]
     Indication: DYSPNOEA
  7. FLEXERIL [Concomitant]
     Indication: MUSCLE TIGHTNESS
     Dosage: 1-2 TABLETS
  8. ZANTAC [Concomitant]
     Indication: GASTROOESOPHAGEAL REFLUX DISEASE
     Dosage: AT BEDTIME
  9. AMBIEN [Concomitant]
     Indication: INSOMNIA
     Dosage: AT BEDTIME
  10. NITROGLYCERIN [Concomitant]
     Indication: CHEST PAIN
     Route: 060
  11. PRO-AIR [Concomitant]
     Indication: DYSPNOEA
     Route: 055
  12. PRO-AIR [Concomitant]
     Indication: COUGH
  13. NORCO [Concomitant]
     Indication: PAIN
     Dosage: 1-2 TABLETS EVERY 2 HOURS
  14. FOLIC ACID [Concomitant]
     Indication: PRODUCT USED FOR UNKNOWN INDICATION
     Dosage: 1MG EVERY DAY
  15. CODEINE COUGH SYRUP [Concomitant]
     Indication: PRODUCT USED FOR UNKNOWN INDICATION
     Dosage: 100MG/5ML EVERY 6 HOURS
  16. PRILOSEC [Concomitant]
     Indication: GASTROOESOPHAGEAL REFLUX DISEASE
  17. VITAMIN D [Concomitant]
     Indication: PRODUCT USED FOR UNKNOWN INDICATION
  18. METOPROLOL EXTENDED RELEASE [Concomitant]
     Indication: HYPERTENSION
     Dosage: 50MG DAILY
  19. MOTRIN [Concomitant]
     Indication: PAIN
  20. EFFEXOR XR [Concomitant]
     Indication: DEPRESSION
     Dosage: 150MG DAILY
  21. METFORMIN HCL [Concomitant]
     Indication: APPETITE DISORDER
     Dosage: WITH MEALS
  22. SIMVASTATIN [Concomitant]
     Indication: BLOOD CHOLESTEROL INCREASED
     Dosage: AT BEDTIME

REACTIONS (2)
  - Injection site pain [Not Recovered/Not Resolved]
  - Dyspnoea [Not Recovered/Not Resolved]
